FAERS Safety Report 15956566 (Version 2)
Quarter: 2019Q1

REPORT INFORMATION
  Report Type: Report from Study
  Country: US (occurrence: US)
  Receive Date: 20190213
  Receipt Date: 20190328
  Transmission Date: 20190417
  Serious: Yes (Hospitalization, Other)
  Sender: FDA-Public Use
  Company Number: US-JNJFOC-20190214566

PATIENT
  Age: 76 Year
  Sex: Male
  Weight: 106 kg

DRUGS (18)
  1. DULCOLAX STOOL SOFTENER [Concomitant]
     Active Substance: DOCUSATE SODIUM
  2. METOPROLOL. [Concomitant]
     Active Substance: METOPROLOL
  3. OXYCODONE AND ACETAMINOPHEN [Concomitant]
     Active Substance: ACETAMINOPHEN\OXYCODONE HYDROCHLORIDE
  4. VITAMIN D [Concomitant]
     Active Substance: CHOLECALCIFEROL
  5. FUROSEMIDE. [Concomitant]
     Active Substance: FUROSEMIDE
  6. MIRALAX [Concomitant]
     Active Substance: POLYETHYLENE GLYCOL 3350
  7. TIKOSYN [Concomitant]
     Active Substance: DOFETILIDE
  8. IMBRUVICA [Suspect]
     Active Substance: IBRUTINIB
     Indication: CHRONIC LYMPHOCYTIC LEUKAEMIA
     Dosage: 280 MG, QD
     Route: 048
     Dates: start: 20161029
  9. IMBRUVICA [Suspect]
     Active Substance: IBRUTINIB
     Indication: CHRONIC LYMPHOCYTIC LEUKAEMIA
     Dosage: 280 MG, QD
     Route: 048
     Dates: start: 20180924
  10. TAMSULOSIN [Concomitant]
     Active Substance: TAMSULOSIN
  11. SPIRONOLACTONE W/HYDROCHLOROTHIAZIDE [Concomitant]
     Active Substance: HYDROCHLOROTHIAZIDE\SPIRONOLACTONE
  12. ULORIC [Concomitant]
     Active Substance: FEBUXOSTAT
  13. CALCIUM [Concomitant]
     Active Substance: CALCIUM
  14. MUCINEX [Concomitant]
     Active Substance: GUAIFENESIN
  15. ALFUZOSIN [Concomitant]
     Active Substance: ALFUZOSIN
  16. TRIAMCINOLONE [Concomitant]
     Active Substance: TRIAMCINOLONE
  17. METFORMIN [Concomitant]
     Active Substance: METFORMIN HYDROCHLORIDE
  18. ELIQUIS [Concomitant]
     Active Substance: APIXABAN

REACTIONS (2)
  - Duodenitis [Recovered/Resolved]
  - Gastric haemorrhage [Unknown]

NARRATIVE: CASE EVENT DATE: 20190201
